FAERS Safety Report 9803956 (Version 1)
Quarter: 2014Q1

REPORT INFORMATION
  Report Type: Spontaneous
  Country: FR (occurrence: FR)
  Receive Date: 20140108
  Receipt Date: 20140108
  Transmission Date: 20141002
  Serious: Yes (Other)
  Sender: FDA-Public Use
  Company Number: FR-SA-2014SA000894

PATIENT
  Age: 67 Year
  Sex: Male

DRUGS (8)
  1. TAXOTERE [Suspect]
     Indication: ADENOCARCINOMA
     Route: 042
     Dates: start: 20130620
  2. TAXOTERE [Suspect]
     Indication: MALIGNANT PERITONEAL NEOPLASM
     Route: 042
     Dates: start: 20130620
  3. TAXOTERE [Suspect]
     Indication: ADENOCARCINOMA
     Route: 042
     Dates: start: 20130823
  4. TAXOTERE [Suspect]
     Indication: MALIGNANT PERITONEAL NEOPLASM
     Route: 042
     Dates: start: 20130823
  5. CISPLATIN [Concomitant]
     Indication: MALIGNANT PERITONEAL NEOPLASM
     Route: 042
     Dates: start: 20130620
  6. CISPLATIN [Concomitant]
     Indication: ADENOCARCINOMA
     Route: 042
     Dates: start: 20130620
  7. 5-FU [Concomitant]
     Indication: MALIGNANT PERITONEAL NEOPLASM
     Route: 042
     Dates: start: 20130620
  8. 5-FU [Concomitant]
     Indication: ADENOCARCINOMA
     Route: 042
     Dates: start: 20130620

REACTIONS (3)
  - Jaundice cholestatic [Recovered/Resolved]
  - Blood alkaline phosphatase increased [Recovered/Resolved]
  - Gamma-glutamyltransferase increased [Recovered/Resolved]
